FAERS Safety Report 4328696-3 (Version None)
Quarter: 2004Q1

REPORT INFORMATION
  Report Type: 
  Country: None (occurrence: None)
  Receive Date: 20040329
  Receipt Date: 20031216
  Transmission Date: 20041129
  Serious: Yes (Hospitalization)
  Sender: FDA-Public Use
  Company Number: 03P-163-0244858-00

PATIENT
  Age: 68 Year
  Sex: Female

DRUGS (9)
  1. HUMIRA [Suspect]
     Indication: RHEUMATOID ARTHRITIS
     Dosage: 40 MG, 1 IN 2 WK, SUBCUTANEOUS
     Route: 058
     Dates: start: 20030730, end: 20031119
  2. ALLOPURINOL [Concomitant]
  3. CELECOXIB [Concomitant]
  4. PREDNISOLONE [Concomitant]
  5. HYDROCODONE [Concomitant]
  6. FUROSEMIDE [Concomitant]
  7. ERYTHROMYCIN [Concomitant]
  8. LISINOPRIL [Concomitant]
  9. INSULIN [Concomitant]

REACTIONS (1)
  - RASH [None]
